FAERS Safety Report 4851659-6 (Version None)
Quarter: 2005Q4

REPORT INFORMATION
  Report Type: 
  Country: None (occurrence: None)
  Receive Date: 20051212
  Receipt Date: 20051129
  Transmission Date: 20060501
  Serious: Yes (Other)
  Sender: FDA-Public Use
  Company Number: FR-NOVOPROD-248977

PATIENT
  Sex: Female

DRUGS (4)
  1. INSULATARD NPH HUMAN [Suspect]
     Indication: DIABETES MELLITUS
     Dosage: 8 IU MORNING + 8 IU AFTERNOON
     Dates: start: 20051105, end: 20051129
  2. HYPERIUM [Concomitant]
  3. NISISCO [Concomitant]
  4. AVLOCARDYL [Concomitant]

REACTIONS (4)
  - HEART RATE INCREASED [None]
  - HYPERTENSION [None]
  - OEDEMA [None]
  - PRURITUS [None]
